FAERS Safety Report 10170923 (Version 2)
Quarter: 2014Q2

REPORT INFORMATION
  Report Type: Report from Study
  Country: US (occurrence: None)
  Receive Date: 20140512
  Receipt Date: 20140523
  Transmission Date: 20141212
  Serious: Yes (Hospitalization)
  Sender: FDA-Public Use
  Company Number: 2014SGN00484

PATIENT
  Age: 73 Year
  Sex: Male
  Weight: 82.9 kg

DRUGS (10)
  1. BRENTUXIMAB VEDOTIN (BRENTUXIMAB VEDOTIN) INJECTION [Suspect]
     Indication: HODGKIN^S DISEASE
     Dosage: 1.8 MG/KG, Q21D, INTRAVENOUS
     Route: 042
     Dates: start: 20140304, end: 20140327
  2. RIVAROXABAN (RIVAROXABAN) [Concomitant]
  3. DAPSONE (DAPSONE) [Concomitant]
  4. ALLOPURINOL (ALLOPURINOL) [Concomitant]
  5. PREDNISONE (PREDNISONE) [Concomitant]
  6. KEPRRA (LEVETIRACETAM) [Concomitant]
  7. OMEPRAZOLE (OMEPRAZOLE) [Concomitant]
  8. PHENYTOIN (PHENYTOIN) [Concomitant]
  9. CLONAZEPAM (CLONAZEPAM) (CLONAZEPAM) [Concomitant]
  10. FERROUS SULFATE (FERROUS SULFATE) [Concomitant]

REACTIONS (14)
  - Liver function test abnormal [None]
  - Coagulation factor increased [None]
  - Liver disorder [None]
  - Aspartate aminotransferase increased [None]
  - Alanine aminotransferase increased [None]
  - Blood alkaline phosphatase increased [None]
  - Hyperbilirubinaemia [None]
  - Oedema [None]
  - Hepatomegaly [None]
  - Hepatic steatosis [None]
  - Splenomegaly [None]
  - Pancreatitis [None]
  - Haemangioma of liver [None]
  - Decreased appetite [None]
